FAERS Safety Report 6447935-6 (Version None)
Quarter: 2009Q4

REPORT INFORMATION
  Report Type: 
  Country: None (occurrence: None)
  Receive Date: 20091120
  Receipt Date: 20091110
  Transmission Date: 20100525
  Serious: Yes (Hospitalization)
  Sender: FDA-Public Use
  Company Number: ES-JNJFOC-20091102612

PATIENT
  Age: 34 Year
  Sex: Male

DRUGS (7)
  1. CONCERTA [Suspect]
     Route: 048
     Dates: start: 20070222, end: 20070222
  2. CONCERTA [Suspect]
     Indication: MANIA
     Route: 048
     Dates: start: 20070222, end: 20070222
  3. TOPAMAX [Concomitant]
     Indication: DRUG USE FOR UNKNOWN INDICATION
     Route: 048
     Dates: start: 20070222, end: 20070223
  4. LORAZEPAM [Concomitant]
     Indication: DRUG USE FOR UNKNOWN INDICATION
     Route: 048
     Dates: start: 20070222, end: 20070314
  5. TRILEPTAL [Concomitant]
     Indication: DRUG USE FOR UNKNOWN INDICATION
     Route: 048
     Dates: start: 20070222, end: 20070223
  6. ZYPREXA [Concomitant]
     Indication: DRUG USE FOR UNKNOWN INDICATION
     Route: 048
  7. TESTOBION [Concomitant]
     Indication: DRUG USE FOR UNKNOWN INDICATION
     Route: 030

REACTIONS (3)
  - MANIA [None]
  - NERVOUSNESS [None]
  - OVERDOSE [None]
